FAERS Safety Report 20323246 (Version 1)
Quarter: 2022Q1

REPORT INFORMATION
  Report Type: Spontaneous
  Country: US (occurrence: None)
  Receive Date: 20220111
  Receipt Date: 20220111
  Transmission Date: 20220423
  Serious: Yes (Other)
  Sender: FDA-Public Use
  Company Number: None

PATIENT
  Age: 90 Year
  Sex: Male
  Weight: 86 kg

DRUGS (22)
  1. ABIRATERONE [Suspect]
     Active Substance: ABIRATERONE
     Indication: Prostate cancer
     Dosage: FREQUENCY : DAILY;?
     Route: 048
     Dates: start: 20210317
  2. ALLOPURINOL [Concomitant]
     Active Substance: ALLOPURINOL
  3. FUROSEMIDE [Concomitant]
     Active Substance: FUROSEMIDE
  4. Gen Teal [Concomitant]
  5. TYLENOL COLD MAX [Concomitant]
  6. NORVASC [Concomitant]
     Active Substance: AMLODIPINE BESYLATE
  7. AMOXICILLIN [Concomitant]
     Active Substance: AMOXICILLIN
  8. ASPIRIN [Concomitant]
     Active Substance: ASPIRIN
  9. LIPITOR [Concomitant]
     Active Substance: ATORVASTATIN CALCIUM
  10. ROCALTROL [Concomitant]
     Active Substance: CALCITRIOL
  11. OSCAL [Concomitant]
     Active Substance: CALCIUM CARBONATE
  12. CALCIUM\VITAMIN D [Concomitant]
     Active Substance: CALCIUM\VITAMIN D
  13. VITAMIN D3 [Concomitant]
     Active Substance: CHOLECALCIFEROL
  14. cholesterol trio [Concomitant]
  15. DOCUSATE SODIUM [Concomitant]
     Active Substance: DOCUSATE SODIUM
  16. FERROUS GLUCONATE [Concomitant]
     Active Substance: FERROUS GLUCONATE
  17. SYNTHROID [Concomitant]
     Active Substance: LEVOTHYROXINE SODIUM
  18. MEDROL [Concomitant]
     Active Substance: METHYLPREDNISOLONE
  19. FLOMAX [Concomitant]
     Active Substance: TAMSULOSIN HYDROCHLORIDE
  20. DEMADEX [Concomitant]
     Active Substance: TORSEMIDE
  21. COUMADIN [Concomitant]
     Active Substance: WARFARIN SODIUM
  22. BICALUTAMIDE [Concomitant]
     Active Substance: BICALUTAMIDE

REACTIONS (1)
  - Asthenia [None]

NARRATIVE: CASE EVENT DATE: 20220111
